FAERS Safety Report 6583950-X (Version None)
Quarter: 2010Q1

REPORT INFORMATION
  Report Type: 
  Country: None (occurrence: None)
  Receive Date: 20100216
  Receipt Date: 20091201
  Transmission Date: 20100710
  Serious: No
  Sender: FDA-Public Use
  Company Number: US-ABBOTT-09P-163-0611952-00

PATIENT
  Sex: Male
  Weight: 77.18 kg

DRUGS (5)
  1. SIMCOR [Suspect]
     Indication: BLOOD CHOLESTEROL INCREASED
     Dosage: 500/20 MG AT BEDTIME
     Dates: start: 20091121
  2. SYNTHROID [Concomitant]
     Indication: DRUG USE FOR UNKNOWN INDICATION
  3. KLONOPIN [Concomitant]
     Indication: DRUG USE FOR UNKNOWN INDICATION
  4. ETEDOLAC [Concomitant]
     Indication: DRUG USE FOR UNKNOWN INDICATION
  5. CIALIS [Concomitant]
     Indication: DRUG USE FOR UNKNOWN INDICATION

REACTIONS (1)
  - FLUSHING [None]
